FAERS Safety Report 10782518 (Version 1)
Quarter: 2015Q1

REPORT INFORMATION
  Report Type: Spontaneous
  Country: US (occurrence: None)
  Receive Date: 20150209
  Receipt Date: 20150209
  Transmission Date: 20150721
  Serious: Yes (Hospitalization)
  Sender: FDA-Public Use
  Company Number: None

PATIENT
  Age: 67 Year
  Sex: Female
  Weight: 65.5 kg

DRUGS (1)
  1. SIROLIMUS. [Suspect]
     Active Substance: SIROLIMUS
     Indication: PNEUMONITIS
     Route: 048
     Dates: start: 20140801, end: 20141229

REACTIONS (3)
  - Pneumonitis [None]
  - Asthenia [None]
  - Back pain [None]

NARRATIVE: CASE EVENT DATE: 20141231
